FAERS Safety Report 9461928 (Version 1)
Quarter: 2013Q3

REPORT INFORMATION
  Report Type: Spontaneous
  Country: SA (occurrence: SA)
  Receive Date: 20130816
  Receipt Date: 20130816
  Transmission Date: 20140515
  Serious: Yes (Other)
  Sender: FDA-Public Use
  Company Number: SA-BAYER-2013-096696

PATIENT
  Age: 45 Year
  Sex: Male

DRUGS (7)
  1. SORAFENIB (RAF KINASE INHIBITOR) [Suspect]
     Indication: RENAL CELL CARCINOMA RECURRENT
     Dosage: 400 MG,
     Route: 048
     Dates: start: 2007, end: 2011
  2. SORAFENIB (RAF KINASE INHIBITOR) [Suspect]
     Indication: METASTASES TO LIVER
  3. SORAFENIB (RAF KINASE INHIBITOR) [Suspect]
     Indication: METASTASES TO LYMPH NODES
  4. ISONIAZIDE [Concomitant]
     Indication: TUBERCULOSIS
  5. ETAMBUTOL [Concomitant]
     Indication: TUBERCULOSIS
  6. MOXIFLOXACIN [Concomitant]
     Indication: TUBERCULOSIS
  7. PYRIDOXINE [Concomitant]
     Indication: TUBERCULOSIS

REACTIONS (7)
  - Carotid artery stenosis [None]
  - Transient ischaemic attack [Recovered/Resolved]
  - Arterial stenosis [None]
  - Tuberculosis [None]
  - Palmar-plantar erythrodysaesthesia syndrome [None]
  - Diarrhoea [None]
  - Hypertension [None]
